FAERS Safety Report 23349916 (Version 1)
Quarter: 2023Q4

REPORT INFORMATION
  Report Type: Spontaneous
  Country: US (occurrence: US)
  Receive Date: 20231229
  Receipt Date: 20231229
  Transmission Date: 20240109
  Serious: No
  Sender: FDA-Public Use
  Company Number: US-SANDOZ-SDZ2023US072512

PATIENT
  Age: 60 Year
  Sex: Female
  Weight: 41.5 kg

DRUGS (7)
  1. AZITHROMYCIN [Suspect]
     Active Substance: AZITHROMYCIN
     Indication: Mycobacterium avium complex infection
     Dosage: UNK, Q3W
     Route: 065
     Dates: start: 202310
  2. ETHAMBUTOL [Suspect]
     Active Substance: ETHAMBUTOL HYDROCHLORIDE
     Indication: Immunosuppression
     Dosage: UNK UNK, QD
     Route: 065
     Dates: start: 202310
  3. ETHAMBUTOL [Suspect]
     Active Substance: ETHAMBUTOL HYDROCHLORIDE
     Indication: Mycobacterium avium complex infection
     Dosage: UNK, Q3W
     Route: 065
     Dates: start: 202310
  4. RIFAMPIN [Suspect]
     Active Substance: RIFAMPIN
     Indication: Immunosuppression
     Dosage: UNK UNK, QD
     Route: 065
     Dates: start: 202310
  5. RIFAMPIN [Suspect]
     Active Substance: RIFAMPIN
     Indication: Mycobacterium avium complex infection
     Dosage: UNK, Q3W
     Route: 065
     Dates: start: 202310
  6. RIFABUTIN [Suspect]
     Active Substance: RIFABUTIN
     Indication: Mycobacterium avium complex infection
     Dosage: UNK UNK, QD
     Route: 065
     Dates: start: 202310
  7. RIFABUTIN [Suspect]
     Active Substance: RIFABUTIN
     Indication: Immunosuppression

REACTIONS (2)
  - Nausea [Recovering/Resolving]
  - Vomiting [Recovering/Resolving]
